FAERS Safety Report 9547167 (Version 1)
Quarter: 2013Q2

REPORT INFORMATION
  Report Type: Spontaneous
  Country: US (occurrence: None)
  Receive Date: 20130606
  Receipt Date: 20130606
  Transmission Date: 20140414
  Serious: No
  Sender: FDA-Public Use
  Company Number: 163-POMAL-13032803

PATIENT
  Age: 44 Year
  Sex: Male

DRUGS (9)
  1. POMALYST (POMALIDOMIDE) (CAPSULES) [Suspect]
     Indication: PLASMA CELL MYELOMA
     Dosage: 4 MG, 21 IN 21 D, PO
     Route: 048
     Dates: start: 20130226
  2. ACYCLOVIR(ACICLOVIR) [Concomitant]
  3. DAPSONE(DAPSONE) [Concomitant]
  4. DEXAMETHASONE(DEXAMETHASONE) [Concomitant]
  5. GABAPENTIN(GABAPENTIN) [Concomitant]
  6. METOPROLOL TARTRATE (METOPROLOL TARTRATE) [Concomitant]
  7. OMEPRAZOLE(OMEPRAZOLE) [Concomitant]
  8. TRAMADOL ACETAMINOPHEN(UKNOWN) [Concomitant]
  9. VITAMIN D (ERGOCALCIFEROL) [Concomitant]

REACTIONS (2)
  - Rash [None]
  - Back pain [None]
